FAERS Safety Report 7088448-0 (Version None)
Quarter: 2010Q4

REPORT INFORMATION
  Report Type: 
  Country: None (occurrence: None)
  Receive Date: 20101108
  Receipt Date: 20101102
  Transmission Date: 20110411
  Serious: Yes (Hospitalization, Other)
  Sender: FDA-Public Use
  Company Number: US-PFIZER INC-2010094474

PATIENT
  Sex: Male
  Weight: 87.5 kg

DRUGS (4)
  1. SUTENT [Suspect]
     Indication: METASTATIC RENAL CELL CARCINOMA
     Dosage: 50 MG, 1X/DAY, 4 WEEKS ON + 2 OFF
     Route: 048
     Dates: start: 20100706
  2. SUTENT [Suspect]
     Indication: NEOPLASM
  3. TYLENOL [Concomitant]
     Dosage: UNK
  4. SYNTHROID [Concomitant]
     Indication: THYROIDECTOMY
     Dosage: UNK

REACTIONS (3)
  - CELLULITIS STAPHYLOCOCCAL [None]
  - RECTAL HAEMORRHAGE [None]
  - SUBCLAVIAN ARTERY THROMBOSIS [None]
